FAERS Safety Report 12995102 (Version 1)
Quarter: 2016Q4

REPORT INFORMATION
  Report Type: Spontaneous
  Country: US (occurrence: US)
  Receive Date: 20161202
  Receipt Date: 20161202
  Transmission Date: 20170207
  Serious: Yes (Other)
  Sender: FDA-Public Use
  Company Number: US-PERRIGO-16US022235

PATIENT
  Sex: Female

DRUGS (2)
  1. VESICARE [Suspect]
     Active Substance: SOLIFENACIN SUCCINATE
     Indication: PRODUCT USED FOR UNKNOWN INDICATION
     Dosage: 5 MG, QD
     Route: 065
  2. TROSPIUM CHLORIDE. [Suspect]
     Active Substance: TROSPIUM CHLORIDE
     Indication: PRODUCT USED FOR UNKNOWN INDICATION
     Dosage: UNKNOWN, UNKNOWN
     Route: 065

REACTIONS (6)
  - Bladder disorder [Unknown]
  - Infection [Unknown]
  - Swelling [Unknown]
  - Asthenia [Unknown]
  - Blood potassium decreased [Unknown]
  - Dehydration [Unknown]

NARRATIVE: CASE EVENT DATE: 2016
